FAERS Safety Report 8186883-0 (Version None)
Quarter: 2012Q1

REPORT INFORMATION
  Report Type: 
  Country: None (occurrence: None)
  Receive Date: 20120213
  Receipt Date: 20111122
  Transmission Date: 20120608
  Serious: No
  Sender: FDA-Public Use
  Company Number: 1000015885

PATIENT
  Age: 55 Year
  Sex: Female

DRUGS (6)
  1. PREVACID [Concomitant]
  2. SAVELLA [Suspect]
     Indication: FIBROMYALGIA
     Dosage: 12.5 MG (12.5 MG, 1 IN 1 D); 25MG (25 MG, 2 IN 1 D); 50MG (25 MG 2 IN 1 D);100 MG (50 MG 2 IN1),ORAL
     Route: 048
     Dates: start: 20100501, end: 20100501
  3. SAVELLA [Suspect]
     Indication: FIBROMYALGIA
     Dosage: 12.5 MG (12.5 MG, 1 IN 1 D); 25MG (25 MG, 2 IN 1 D); 50MG (25 MG 2 IN 1 D);100 MG (50 MG 2 IN1),ORAL
     Route: 048
     Dates: start: 20100501
  4. SAVELLA [Suspect]
     Indication: FIBROMYALGIA
     Dosage: 12.5 MG (12.5 MG, 1 IN 1 D); 25MG (25 MG, 2 IN 1 D); 50MG (25 MG 2 IN 1 D);100 MG (50 MG 2 IN1),ORAL
     Route: 048
     Dates: start: 20100501, end: 20100501
  5. SYNTHROID [Concomitant]
  6. FLONASE (NASAL DROPS (INCLUDING NASAL SPRAY) [Concomitant]

REACTIONS (2)
  - FATIGUE [None]
  - ASTHENIA [None]
